FAERS Safety Report 8390501-6 (Version None)
Quarter: 2012Q2

REPORT INFORMATION
  Report Type: 
  Country: None (occurrence: None)
  Receive Date: 20120529
  Receipt Date: 20120522
  Transmission Date: 20120825
  Serious: Yes (Other)
  Sender: FDA-Public Use
  Company Number: US-JNJFOC-20120518843

PATIENT
  Sex: Male
  Weight: 140.62 kg

DRUGS (16)
  1. NUCYNTA [Suspect]
     Indication: DIABETIC NEUROPATHY
     Dosage: EVERY 4 HOURS OR AS NEEDED
     Route: 048
     Dates: start: 20120511, end: 20120511
  2. LISINOPRIL [Concomitant]
     Indication: BLOOD PRESSURE
     Dosage: DAILY
     Route: 048
     Dates: start: 20110101
  3. LASIX [Concomitant]
     Indication: DIURETIC THERAPY
     Dosage: DAILY
     Route: 048
     Dates: start: 20050101
  4. PROTONIX [Concomitant]
     Indication: ULCER
     Dosage: TWICE DAILY
     Route: 048
     Dates: start: 20020101
  5. COPAXONE [Concomitant]
     Indication: MULTIPLE SCLEROSIS
     Dosage: DAILY
     Route: 030
     Dates: start: 20040101
  6. LANTUS [Concomitant]
     Indication: DIABETES MELLITUS
     Dosage: DAILY
     Route: 058
     Dates: start: 20110101
  7. LYRICA [Concomitant]
     Indication: NEURALGIA
     Dosage: TWICE DAILY
     Route: 048
     Dates: start: 20090101
  8. TIZANIDINE [Concomitant]
     Indication: MUSCLE RELAXANT THERAPY
     Dosage: DAILY
     Route: 048
     Dates: start: 20020101
  9. NUCYNTA [Suspect]
     Dosage: EVERY 4 HOURS OR AS NEEDED
     Route: 048
     Dates: start: 20120512
  10. GLIPIZIDE [Concomitant]
     Indication: DIABETES MELLITUS
     Dosage: DAILY
     Route: 048
     Dates: start: 20110101
  11. ASPIRIN [Concomitant]
     Indication: PRODUCT USED FOR UNKNOWN INDICATION
     Dosage: DAILY
     Route: 048
     Dates: start: 20110101
  12. TOPAMAX [Concomitant]
     Indication: HEADACHE
     Dosage: TWICE DAILY
     Route: 048
     Dates: start: 20020101
  13. MAGNESIUM [Concomitant]
     Indication: RENAL DISORDER
     Dosage: 4 TIMES DAILY
     Route: 048
     Dates: start: 20110101
  14. EFFEXOR XR [Concomitant]
     Indication: DEPRESSION
     Dosage: DAILY
     Route: 048
     Dates: start: 20110101
  15. METFORMIN HCL [Concomitant]
     Indication: DIABETES MELLITUS
     Dosage: DAILY
     Route: 048
     Dates: start: 20120321
  16. NOVOLOG [Concomitant]
     Indication: DIABETES MELLITUS
     Dosage: DAILY
     Route: 058
     Dates: start: 20110101

REACTIONS (6)
  - GAIT DISTURBANCE [None]
  - FEELING DRUNK [None]
  - FEELING ABNORMAL [None]
  - DYSPNOEA [None]
  - WRONG TECHNIQUE IN DRUG USAGE PROCESS [None]
  - ASTHENOPIA [None]
